FAERS Safety Report 8217019-5 (Version None)
Quarter: 2012Q1

REPORT INFORMATION
  Report Type: 
  Country: None (occurrence: None)
  Receive Date: 20120319
  Receipt Date: 20120309
  Transmission Date: 20120608
  Serious: Yes (Other)
  Sender: FDA-Public Use
  Company Number: US-BIOGENIDEC-2012BI008943

PATIENT
  Sex: Female
  Weight: 130 kg

DRUGS (10)
  1. AVONEX [Suspect]
     Indication: MULTIPLE SCLEROSIS
     Route: 030
     Dates: start: 20100105
  2. SEROQUEL [Concomitant]
  3. METAMUCIL-2 [Concomitant]
  4. LEVOTHYROXINE SODIUM [Concomitant]
  5. LORAZEPAM [Concomitant]
  6. TOPAMAX [Concomitant]
  7. CRESTOR [Concomitant]
  8. ALBUTEROL [Concomitant]
  9. LAMICTAL [Concomitant]
  10. METFORMIN HYDROCHLORIDE [Concomitant]

REACTIONS (1)
  - HYSTERECTOMY [None]
